FAERS Safety Report 6543679 (Version 2)
Quarter: 2020Q3

REPORT INFORMATION
  Report Type: Spontaneous
  Country: GB (occurrence: GB)
  Receive Date: 20080205
  Receipt Date: 20091002
  Transmission Date: 20201105
  Serious: Yes (Other)
  Sender: FDA-Public Use
  Company Number: GB-TEVA-166820ISR

PATIENT
  Age: 51 Year
  Sex: Female

DRUGS (10)
  1. ANASTROZOLE. [Interacting]
     Active Substance: ANASTROZOLE
     Indication: BREAST CANCER
  2. IBANDRONIC ACID. [Interacting]
     Active Substance: IBANDRONIC ACID
     Indication: METASTASIS
     Route: 048
     Dates: start: 200408
  3. CLODRONATE DISODIUM [Interacting]
     Active Substance: CLODRONATE DISODIUM
     Indication: METASTASIS
     Dates: start: 200104
  4. CYCLOPHOSPHAMIDE. [Interacting]
     Active Substance: CYCLOPHOSPHAMIDE
     Indication: BREAST CANCER
  5. METHOTREXATE. [Interacting]
     Active Substance: METHOTREXATE
     Indication: BREAST CANCER
  6. PAMIDRONATE DISODIUM. [Suspect]
     Active Substance: PAMIDRONATE DISODIUM
     Indication: BREAST CANCER METASTATIC
     Route: 040
     Dates: start: 200201, end: 200211
  7. TAMOXIFEN CITRATE. [Interacting]
     Active Substance: TAMOXIFEN CITRATE
     Indication: BREAST CANCER
  8. FLUOROURACIL. [Interacting]
     Active Substance: FLUOROURACIL
     Indication: BREAST CANCER
  9. EXEMESTANE. [Interacting]
     Active Substance: EXEMESTANE
     Indication: BREAST CANCER
  10. ZOLEDRONIC ACID [Interacting]
     Active Substance: ZOLEDRONIC ACID
     Indication: METASTASIS
     Route: 042
     Dates: start: 200201

REACTIONS (3)
  - Osteonecrosis [Unknown]
  - Infection [None]
  - Drug interaction [Unknown]
